FAERS Safety Report 23131299 (Version 3)
Quarter: 2023Q4

REPORT INFORMATION
  Report Type: Report from Study
  Country: CA (occurrence: CA)
  Receive Date: 20231031
  Receipt Date: 20231205
  Transmission Date: 20240110
  Serious: Yes (Hospitalization)
  Sender: FDA-Public Use
  Company Number: CA-002147023-PHHY2018CA197026

PATIENT
  Age: 31 Year
  Sex: Female

DRUGS (35)
  1. COSENTYX [Suspect]
     Active Substance: SECUKINUMAB
     Indication: Ankylosing spondylitis
     Dosage: 150 MG, Q2W
     Route: 058
     Dates: start: 20181220
  2. COSENTYX [Suspect]
     Active Substance: SECUKINUMAB
     Indication: Psoriasis
     Dosage: 150 MG, QMO
     Route: 058
  3. COSENTYX [Suspect]
     Active Substance: SECUKINUMAB
     Dosage: 150 MG, Q2W
     Route: 065
  4. COSENTYX [Suspect]
     Active Substance: SECUKINUMAB
     Dosage: 150 MG, Q2W
     Route: 058
     Dates: start: 20190526
  5. COSENTYX [Suspect]
     Active Substance: SECUKINUMAB
     Dosage: UNK
     Route: 065
     Dates: start: 20220126
  6. COSENTYX [Suspect]
     Active Substance: SECUKINUMAB
     Dosage: UNK
     Route: 065
     Dates: start: 20220629
  7. COSENTYX [Suspect]
     Active Substance: SECUKINUMAB
     Dosage: UNK
     Route: 065
     Dates: start: 20231026
  8. ETHINYL ESTRADIOL\NORETHINDRONE ACETATE [Concomitant]
     Active Substance: ETHINYL ESTRADIOL\NORETHINDRONE ACETATE
     Indication: Migraine
     Dosage: 1 DOSAGE FORM, QD
     Route: 048
     Dates: start: 201901
  9. ETHINYL ESTRADIOL\NORETHINDRONE ACETATE [Concomitant]
     Active Substance: ETHINYL ESTRADIOL\NORETHINDRONE ACETATE
     Indication: Contraception
  10. APO FLUCONAZOLE [Concomitant]
     Indication: Product used for unknown indication
     Dosage: UNK
     Route: 065
  11. APO FLUCONAZOLE [Concomitant]
     Dosage: UNK
     Route: 065
  12. FUCIDIN [Concomitant]
     Active Substance: FUSIDATE SODIUM
     Indication: Product used for unknown indication
     Dosage: UNK (TOPIQUE 2% POMMADE)
     Route: 065
  13. HYDERM [Concomitant]
     Indication: Product used for unknown indication
     Dosage: UNK
     Route: 065
  14. KETODERM [Concomitant]
     Indication: Product used for unknown indication
     Dosage: UNK
     Route: 065
  15. LOPROX [Concomitant]
     Active Substance: CICLOPIROX\CICLOPIROX OLAMINE
     Indication: Product used for unknown indication
     Dosage: UNK
     Route: 065
  16. PLAN B [Concomitant]
     Active Substance: LEVONORGESTREL
     Indication: Product used for unknown indication
     Dosage: UNK
     Route: 065
  17. CETIRIZINE [Concomitant]
     Active Substance: CETIRIZINE HYDROCHLORIDE
     Indication: Product used for unknown indication
     Dosage: UNK (PMS-CETRIZINE)
     Route: 065
  18. CETIRIZINE [Concomitant]
     Active Substance: CETIRIZINE HYDROCHLORIDE
     Dosage: UNK
     Route: 065
  19. MOMETASONE [Concomitant]
     Active Substance: MOMETASONE
     Indication: Product used for unknown indication
     Dosage: UNK
     Route: 065
  20. ETHINYL ESTRADIOL\NORGESTIMATE [Concomitant]
     Active Substance: ETHINYL ESTRADIOL\NORGESTIMATE
     Indication: Product used for unknown indication
     Dosage: UNK
     Route: 065
  21. AMOXICILLIN [Concomitant]
     Active Substance: AMOXICILLIN
     Indication: Product used for unknown indication
     Dosage: UNK
     Route: 065
  22. CELECOXIB [Concomitant]
     Active Substance: CELECOXIB
     Indication: Product used for unknown indication
     Dosage: UNK
     Route: 065
  23. MOMETASONE FUROATE [Concomitant]
     Active Substance: MOMETASONE FUROATE
     Indication: Product used for unknown indication
     Dosage: UNK (STRENGTH: 0.1 (UNSPECIFIED UNITS))
     Route: 065
  24. EPIPEN [Concomitant]
     Active Substance: EPINEPHRINE
     Indication: Product used for unknown indication
     Dosage: UNK
     Route: 065
  25. AZITHROMYCIN [Concomitant]
     Active Substance: AZITHROMYCIN
     Indication: Product used for unknown indication
     Dosage: UNK (JAMP AZITHROMYCIN)
     Route: 065
  26. AZITHROMYCIN [Concomitant]
     Active Substance: AZITHROMYCIN
     Dosage: UNK
     Route: 065
  27. METRONIDAZOLE [Concomitant]
     Active Substance: METRONIDAZOLE
     Indication: Product used for unknown indication
     Dosage: UNK
     Route: 065
  28. PENICILLIN V POTASSIUM [Concomitant]
     Active Substance: PENICILLIN V POTASSIUM
     Indication: Product used for unknown indication
     Dosage: UNK
     Route: 065
  29. PREDNISONE [Concomitant]
     Active Substance: PREDNISONE
     Indication: Product used for unknown indication
     Dosage: UNK
     Route: 065
  30. AMOXICILLIN [Concomitant]
     Active Substance: AMOXICILLIN
     Indication: Product used for unknown indication
     Dosage: UNK
     Route: 065
  31. METFORMIN [Concomitant]
     Active Substance: METFORMIN HYDROCHLORIDE
     Indication: Product used for unknown indication
     Dosage: UNK
     Route: 065
  32. CIMZIA [Concomitant]
     Active Substance: CERTOLIZUMAB PEGOL
     Indication: Product used for unknown indication
     Dosage: UNK
     Route: 065
     Dates: start: 201908, end: 202002
  33. POLYSPORIN [Concomitant]
     Active Substance: BACITRACIN ZINC\POLYMYXIN B SULFATE
     Indication: Product used for unknown indication
     Dosage: UNK (PINK EYE)
     Route: 065
  34. NAPROXEN [Concomitant]
     Active Substance: NAPROXEN
     Indication: Product used for unknown indication
     Dosage: 1 DOSAGE FORM, BID
     Route: 048
     Dates: start: 201802, end: 2018
  35. MICRONOR [Concomitant]
     Active Substance: NORETHINDRONE
     Indication: Product used for unknown indication
     Dosage: UNK
     Route: 065

REACTIONS (43)
  - Pain [Unknown]
  - Nausea [Unknown]
  - Dizziness [Unknown]
  - Loss of consciousness [Unknown]
  - Dysuria [Unknown]
  - Dyspnoea [Unknown]
  - Fatigue [Unknown]
  - Breast discharge [Unknown]
  - Depressed mood [Recovering/Resolving]
  - Breast mass [Unknown]
  - Gait disturbance [Unknown]
  - Back pain [Unknown]
  - Abdominal distension [Unknown]
  - Menstruation irregular [Unknown]
  - Musculoskeletal stiffness [Unknown]
  - Neck pain [Unknown]
  - Arthralgia [Unknown]
  - Joint swelling [Unknown]
  - Discomfort [Unknown]
  - Nerve injury [Unknown]
  - Influenza [Recovered/Resolved]
  - Lymphadenopathy [Unknown]
  - Oropharyngeal pain [Unknown]
  - Abdominal pain [Unknown]
  - Pyrexia [Recovering/Resolving]
  - Seasonal allergy [Unknown]
  - Upper limb fracture [Unknown]
  - COVID-19 [Unknown]
  - Gastroenteritis [Unknown]
  - Hand-foot-and-mouth disease [Unknown]
  - Fall [Unknown]
  - Concussion [Unknown]
  - Ligament sprain [Unknown]
  - Contusion [Unknown]
  - Muscle spasms [Unknown]
  - Sinusitis [Unknown]
  - Nasal inflammation [Unknown]
  - Headache [Unknown]
  - Nasal congestion [Unknown]
  - Diarrhoea [Unknown]
  - Musculoskeletal pain [Unknown]
  - Malaise [Unknown]
  - Product dose omission issue [Unknown]

NARRATIVE: CASE EVENT DATE: 20180101
